FAERS Safety Report 9220110 (Version 2)
Quarter: 2013Q2

REPORT INFORMATION
  Report Type: Spontaneous
  Country: JP (occurrence: None)
  Receive Date: 20130405
  Receipt Date: 20130510
  Transmission Date: 20140414
  Serious: Yes (Other)
  Sender: FDA-Public Use
  Company Number: JP-CLINIGEN HEALTHCARE LIMITED-003050

PATIENT
  Age: 14 Year
  Sex: Female

DRUGS (3)
  1. FOSCAVIR (FOSCAVIR) [Suspect]
     Indication: CYTOMEGALOVIRUS INFECTION
     Route: 041
  2. GANCICLOVIR [Suspect]
     Indication: CYTOMEGALOVIRUS INFECTION
     Dosage: IV DRIP
  3. IMMUNOSUPPRESSIVE AGENTS [Concomitant]

REACTIONS (1)
  - Pain [None]
